FAERS Safety Report 7888293-X (Version None)
Quarter: 2011Q4

REPORT INFORMATION
  Report Type: 
  Country: None (occurrence: None)
  Receive Date: 20111103
  Receipt Date: 20110804
  Transmission Date: 20120403
  Serious: Yes (Hospitalization, Other)
  Sender: FDA-Public Use
  Company Number: US-BAYER-201031732NA

PATIENT
  Age: 19 Year
  Sex: Female

DRUGS (2)
  1. ORTHO TRI-CYCLEN [Concomitant]
  2. YASMIN [Suspect]
     Indication: PRODUCT USED FOR UNKNOWN INDICATION
     Dosage: UNK UNK, QD
     Route: 048
     Dates: start: 20010501

REACTIONS (3)
  - DEEP VEIN THROMBOSIS [None]
  - THROMBOSIS [None]
  - HEADACHE [None]
